FAERS Safety Report 20682851 (Version 1)
Quarter: 2022Q2

REPORT INFORMATION
  Report Type: Spontaneous
  Country: US (occurrence: US)
  Receive Date: 20220407
  Receipt Date: 20220407
  Transmission Date: 20220720
  Serious: Yes (Hospitalization)
  Sender: FDA-Public Use
  Company Number: US-BRISTOL-MYERS SQUIBB COMPANY-2022-011693

PATIENT
  Sex: Female

DRUGS (1)
  1. REVLIMID [Suspect]
     Active Substance: LENALIDOMIDE
     Indication: Plasma cell myeloma
     Dosage: DOSE : UNAV;     FREQ : TOOK ONCE DAILY FOR 3 DAYS AND THEN STOPPED
     Route: 048
     Dates: start: 20220316

REACTIONS (4)
  - Paraesthesia [Unknown]
  - Dyskinesia [Unknown]
  - Rash [Unknown]
  - Renal disorder [Unknown]

NARRATIVE: CASE EVENT DATE: 20220318
